FAERS Safety Report 8086223-1 (Version None)
Quarter: 2012Q1

REPORT INFORMATION
  Report Type: 
  Country: None (occurrence: None)
  Receive Date: 20120128
  Receipt Date: 20110413
  Transmission Date: 20120608
  Serious: No
  Sender: FDA-Public Use
  Company Number: US-ABBOTT-11P-163-0719674-00

PATIENT
  Sex: Female
  Weight: 87.622 kg

DRUGS (2)
  1. UNKNOWN PSYCIATRIC MEDICATIONS [Concomitant]
     Indication: PRODUCT USED FOR UNKNOWN INDICATION
  2. HUMIRA [Suspect]
     Indication: PSORIASIS
     Route: 058
     Dates: start: 20110325

REACTIONS (2)
  - FLUID RETENTION [None]
  - INJECTION SITE REACTION [None]
